FAERS Safety Report 20963844 (Version 2)
Quarter: 2022Q3

REPORT INFORMATION
  Report Type: Spontaneous
  Country: US (occurrence: US)
  Receive Date: 20220615
  Receipt Date: 20220707
  Transmission Date: 20221026
  Serious: No
  Sender: FDA-Public Use
  Company Number: US-GILEAD-2022-0584541

PATIENT
  Sex: Female

DRUGS (6)
  1. EPCLUSA [Suspect]
     Active Substance: SOFOSBUVIR\VELPATASVIR
     Indication: Chronic hepatitis C
     Dosage: 1 DOSAGE FORM (400/100 MG), QD
     Route: 048
     Dates: start: 20220513
  2. LOESTRIN 1.5/30-21 [Concomitant]
  3. CURCUMAX PRO [Concomitant]
  4. VITAMIN C [Concomitant]
     Active Substance: ASCORBIC ACID
  5. TUMS [Concomitant]
     Active Substance: CALCIUM CARBONATE
  6. TYLENOL [Concomitant]
     Active Substance: ACETAMINOPHEN

REACTIONS (5)
  - Headache [Unknown]
  - Gastritis [Unknown]
  - Nausea [Unknown]
  - Vertigo [Unknown]
  - Fatigue [Unknown]
